FAERS Safety Report 4289356-0 (Version None)
Quarter: 2004Q1

REPORT INFORMATION
  Report Type: 
  Country: None (occurrence: None)
  Receive Date: 20040203
  Receipt Date: 20021212
  Transmission Date: 20041129
  Serious: Yes (Hospitalization)
  Sender: FDA-Public Use
  Company Number: 200227420BWH

PATIENT
  Age: 48 Year
  Sex: Male
  Weight: 99.7913 kg

DRUGS (1)
  1. AVELOX [Suspect]
     Indication: CELLULITIS
     Dosage: 400 MG, QD, ORAL
     Route: 048
     Dates: start: 20021104

REACTIONS (4)
  - ANAPHYLACTIC REACTION [None]
  - ANGIONEUROTIC OEDEMA [None]
  - RESPIRATORY DISTRESS [None]
  - WHEEZING [None]
